FAERS Safety Report 6128403-8 (Version None)
Quarter: 2009Q1

REPORT INFORMATION
  Report Type: 
  Country: None (occurrence: None)
  Receive Date: 20090323
  Receipt Date: 20090309
  Transmission Date: 20090719
  Serious: Yes (Other)
  Sender: FDA-Public Use
  Company Number: US-ROCHE-622598

PATIENT

DRUGS (2)
  1. CAPECITABINE [Suspect]
     Indication: GASTROINTESTINAL CARCINOMA
     Dosage: DAILYDOSE RANGED FROM 1200 TO 3000 MG/M2,GIVEN IN 2 DIVIDED DOSE ON DAY 1-5 AND 8-12 OF 21 DAY CYCLE
     Route: 065
  2. OXALIPLATIN [Suspect]
     Indication: GASTROINTESTINAL CARCINOMA
     Dosage: DOSE: 130 MG/M2 INFUSED BY VEIN OVER 2 HOURS ON DAY 1
     Route: 042

REACTIONS (1)
  - GASTROINTESTINAL CARCINOMA [None]
